FAERS Safety Report 15996594 (Version 1)
Quarter: 2019Q1

REPORT INFORMATION
  Report Type: Spontaneous
  Country: IT (occurrence: IT)
  Receive Date: 20190222
  Receipt Date: 20190222
  Transmission Date: 20190418
  Serious: Yes (Hospitalization)
  Sender: FDA-Public Use
  Company Number: IT-PFIZER INC-2019075132

PATIENT
  Age: 19 Year
  Sex: Female

DRUGS (2)
  1. ZITROMAX [Suspect]
     Active Substance: AZITHROMYCIN
     Indication: INFLUENZA LIKE ILLNESS
  2. ZITROMAX [Suspect]
     Active Substance: AZITHROMYCIN
     Indication: PYREXIA

REACTIONS (5)
  - Infectious mononucleosis [Unknown]
  - Ocular icterus [Unknown]
  - Yellow skin [Unknown]
  - Drug ineffective [Unknown]
  - Blood urine present [Unknown]

NARRATIVE: CASE EVENT DATE: 201902
